FAERS Safety Report 23085396 (Version 3)
Quarter: 2024Q1

REPORT INFORMATION
  Report Type: Spontaneous
  Country: US (occurrence: US)
  Receive Date: 20231019
  Receipt Date: 20240125
  Transmission Date: 20240410
  Serious: Yes (Other)
  Sender: FDA-Public Use
  Company Number: US-PFIZER INC-202300332045

PATIENT
  Age: 67 Year
  Sex: Female
  Weight: 46.72 kg

DRUGS (2)
  1. PAXLOVID [Suspect]
     Active Substance: NIRMATRELVIR\RITONAVIR
     Indication: COVID-19
     Dosage: 3 DF, 2X/DAY
     Route: 048
     Dates: start: 20230821, end: 20230825
  2. DIVALPROEX SODIUM [Concomitant]
     Active Substance: DIVALPROEX SODIUM
     Indication: Insomnia
     Dosage: 500 MG, 1X/DAY

REACTIONS (7)
  - Near death experience [Unknown]
  - Photopsia [Unknown]
  - Fatigue [Recovered/Resolved]
  - Primary stabbing headache [Unknown]
  - Giant cell arteritis [Unknown]
  - Vision blurred [Unknown]
  - Insomnia [Unknown]

NARRATIVE: CASE EVENT DATE: 20230823
